FAERS Safety Report 24868291 (Version 1)
Quarter: 2025Q1

REPORT INFORMATION
  Report Type: Spontaneous
  Country: US (occurrence: None)
  Receive Date: 20250119
  Receipt Date: 20250119
  Transmission Date: 20250409
  Serious: Yes (Disabling)
  Sender: FDA-CTU
  Company Number: None

PATIENT
  Age: 50 Year
  Sex: Female
  Weight: 67.5 kg

DRUGS (8)
  1. RINVOQ [Suspect]
     Active Substance: UPADACITINIB
     Indication: Rheumatoid arthritis
     Dates: start: 20241211, end: 20241220
  2. HYDROXYCHLOROQUINE [Concomitant]
     Active Substance: HYDROXYCHLOROQUINE
  3. KETAMINE [Concomitant]
     Active Substance: KETAMINE
  4. ADDERALL [Concomitant]
     Active Substance: AMPHETAMINE ASPARTATE\AMPHETAMINE SULFATE\DEXTROAMPHETAMINE SACCHARATE\DEXTROAMPHETAMINE SULFATE
  5. PROMETHAZINE [Concomitant]
     Active Substance: PROMETHAZINE HYDROCHLORIDE
  6. Vitamin D3 with K2 [Concomitant]
  7. Mitocore multi vitamin [Concomitant]
  8. NAD [Concomitant]

REACTIONS (12)
  - Herpes zoster [None]
  - Vision blurred [None]
  - Fatigue [None]
  - Mood swings [None]
  - Nausea [None]
  - Dyspepsia [None]
  - Chills [None]
  - Hot flush [None]
  - Night sweats [None]
  - Headache [None]
  - Musculoskeletal stiffness [None]
  - Weight increased [None]

NARRATIVE: CASE EVENT DATE: 20241213
